FAERS Safety Report 15458792 (Version 1)
Quarter: 2018Q4

REPORT INFORMATION
  Report Type: Spontaneous
  Country: US (occurrence: US)
  Receive Date: 20181001
  Receipt Date: 20181001
  Transmission Date: 20190204
  Serious: Yes (Disabling, Congenital Anomaly)
  Sender: FDA-Public Use
  Company Number: None

PATIENT
  Age: 43 Year
  Sex: Female

DRUGS (10)
  1. LISINOPRIL. [Concomitant]
     Active Substance: LISINOPRIL
  2. DIGOXIN. [Concomitant]
     Active Substance: DIGOXIN
  3. COREG [Concomitant]
     Active Substance: CARVEDILOL
  4. TRAZODONE [Concomitant]
     Active Substance: TRAZODONE HYDROCHLORIDE
  5. TIZANIDINE. [Concomitant]
     Active Substance: TIZANIDINE
  6. EXCEDRIN [Concomitant]
     Active Substance: ACETAMINOPHEN\ASPIRIN\CAFFEINE
  7. CORTICOSTEROIDS NOS [Suspect]
     Active Substance: UNSPECIFIED INGREDIENT
     Indication: BACK PAIN
     Dosage: ?          QUANTITY:1 DF DOSAGE FORM;?
     Route: 048
     Dates: end: 201208
  8. SYNTHROID [Concomitant]
     Active Substance: LEVOTHYROXINE SODIUM
  9. NYSTATIN. [Concomitant]
     Active Substance: NYSTATIN
  10. DIFLUCAN [Concomitant]
     Active Substance: FLUCONAZOLE

REACTIONS (4)
  - Mental impairment [None]
  - Inflammation [None]
  - Contusion [None]
  - Arthralgia [None]

NARRATIVE: CASE EVENT DATE: 20120822
